FAERS Safety Report 4360817-9 (Version None)
Quarter: 2004Q2

REPORT INFORMATION
  Report Type: 
  Country: None (occurrence: None)
  Receive Date: 20040517
  Receipt Date: 20040428
  Transmission Date: 20050107
  Serious: No
  Sender: FDA-Public Use
  Company Number: A04200400380

PATIENT
  Age: 37 Year
  Sex: Male

DRUGS (1)
  1. ARIXTRA [Suspect]
     Dosage: 2.5 MG OD SUBCUTANEOUS
     Route: 058
     Dates: start: 20040401

REACTIONS (2)
  - POST PROCEDURAL COMPLICATION [None]
  - SHOCK [None]
